FAERS Safety Report 7002332-X (Version None)
Quarter: 2010Q3

REPORT INFORMATION
  Report Type: 
  Country: None (occurrence: None)
  Receive Date: 20100920
  Receipt Date: 20100602
  Transmission Date: 20110219
  Serious: Yes (Other)
  Sender: FDA-Public Use
  Company Number: US-ASTRAZENECA-2006UW03665

PATIENT
  Age: 15031 Day
  Sex: Female
  Weight: 71.7 kg

DRUGS (16)
  1. SEROQUEL [Suspect]
     Indication: MENTAL DISORDER
     Dosage: 200-600 MG
     Route: 048
     Dates: start: 20010201, end: 20040101
  2. SEROQUEL [Suspect]
     Indication: BIPOLAR DISORDER
     Dosage: 200-600 MG
     Route: 048
     Dates: start: 20010201, end: 20040101
  3. SEROQUEL [Suspect]
     Indication: SCHIZOPHRENIA
     Dosage: 200-600 MG
     Route: 048
     Dates: start: 20010201, end: 20040101
  4. SEROQUEL [Suspect]
     Route: 048
     Dates: start: 20020611
  5. SEROQUEL [Suspect]
     Route: 048
     Dates: start: 20020611
  6. SEROQUEL [Suspect]
     Route: 048
     Dates: start: 20020611
  7. TRILEPTAL [Concomitant]
  8. KLONOPIN [Concomitant]
     Dates: start: 20020611
  9. ACTOS [Concomitant]
     Dates: start: 20020610
  10. VERAPAMIL HCL [Concomitant]
     Route: 048
     Dates: start: 20020611
  11. DEPAKOTE [Concomitant]
     Dates: start: 20020611
  12. AVANDIA [Concomitant]
     Route: 048
     Dates: start: 20040827
  13. GLUCOTROL XL [Concomitant]
     Dosage: BID
     Route: 048
     Dates: start: 20040827
  14. LANTUS [Concomitant]
     Dosage: 10 UNITS QD
     Dates: start: 20040827
  15. VISTARIL [Concomitant]
     Indication: ANXIETY
     Dosage: 50 MG, 1 CAP QID, PRN
     Route: 048
     Dates: start: 20040827
  16. PRILOSEC [Concomitant]
     Dates: start: 20020611

REACTIONS (7)
  - BLOOD CHOLESTEROL INCREASED [None]
  - DIABETES MELLITUS [None]
  - DYSPHEMIA [None]
  - MUSCLE TWITCHING [None]
  - TARDIVE DYSKINESIA [None]
  - TYPE 2 DIABETES MELLITUS [None]
  - WEIGHT INCREASED [None]
